FAERS Safety Report 5034885-5 (Version None)
Quarter: 2006Q2

REPORT INFORMATION
  Report Type: 
  Country: None (occurrence: None)
  Receive Date: 20060623
  Receipt Date: 20060623
  Transmission Date: 20061013
  Serious: Yes (Hospitalization)
  Sender: FDA-Public Use
  Company Number: None

PATIENT
  Age: 62 Year
  Sex: Male
  Weight: 81.6 kg

DRUGS (3)
  1. AUGMENTIN '125' [Suspect]
     Indication: SKIN ULCER
     Dosage: 875 MG BID PO
     Route: 048
  2. NAPROXEN [Suspect]
     Indication: PAIN IN EXTREMITY
     Dosage: 875 MG BID PO
     Route: 048
  3. NAPROXEN [Suspect]
     Indication: ULCER
     Dosage: 875 MG BID PO
     Route: 048

REACTIONS (17)
  - ABDOMINAL DISTENSION [None]
  - ANOREXIA [None]
  - BLOOD PRESSURE ABNORMAL [None]
  - DEHYDRATION [None]
  - DIARRHOEA [None]
  - EPISTAXIS [None]
  - HAEMODIALYSIS [None]
  - HYPERCHLORAEMIA [None]
  - HYPERKALAEMIA [None]
  - METABOLIC ACIDOSIS [None]
  - NEPHRITIS INTERSTITIAL [None]
  - ORAL INTAKE REDUCED [None]
  - RALES [None]
  - RENAL FAILURE ACUTE [None]
  - RETCHING [None]
  - TRANSAMINASES INCREASED [None]
  - UMBILICAL HERNIA [None]
